FAERS Safety Report 6700054-3 (Version None)
Quarter: 2010Q2

REPORT INFORMATION
  Report Type: 
  Country: None (occurrence: None)
  Receive Date: 20100427
  Receipt Date: 20100427
  Transmission Date: 20101027
  Serious: Yes (Hospitalization)
  Sender: FDA-Public Use
  Company Number: None

PATIENT
  Age: 56 Year
  Sex: Male
  Weight: 189 kg

DRUGS (2)
  1. COUMADIN [Suspect]
     Indication: ATRIAL FLUTTER
     Dosage: 10MG DAILY PO
     Route: 048
  2. MULTAQ [Suspect]
     Dosage: 400MG BID PO
     Route: 048

REACTIONS (9)
  - ASTHENIA [None]
  - COAGULOPATHY [None]
  - DRUG INTERACTION [None]
  - GROIN PAIN [None]
  - HAEMATOMA [None]
  - HAEMORRHAGIC ANAEMIA [None]
  - HYPOTENSION [None]
  - INTERNATIONAL NORMALISED RATIO INCREASED [None]
  - THERAPEUTIC AGENT TOXICITY [None]
